FAERS Safety Report 8630186 (Version 3)
Quarter: 2014Q1

REPORT INFORMATION
  Report Type: Spontaneous
  Country: US (occurrence: US)
  Receive Date: 20120622
  Receipt Date: 20140124
  Transmission Date: 20141002
  Serious: Yes (Hospitalization, Disabling, Other)
  Sender: FDA-Public Use
  Company Number: US-ASTRAZENECA-2012SE34440

PATIENT
  Age: 46 Year
  Sex: Male

DRUGS (20)
  1. NEXIUM [Suspect]
     Indication: GASTROOESOPHAGEAL REFLUX DISEASE
     Route: 048
     Dates: start: 2008, end: 2013
  2. NEXIUM [Suspect]
     Indication: GASTROOESOPHAGEAL REFLUX DISEASE
     Route: 048
     Dates: start: 20110822
  3. PRILOSEC [Suspect]
     Indication: GASTROOESOPHAGEAL REFLUX DISEASE
     Route: 048
     Dates: start: 20091106, end: 20101107
  4. PRILOSEC OTC [Suspect]
     Indication: GASTROOESOPHAGEAL REFLUX DISEASE
     Route: 048
  5. PREVACID [Suspect]
     Indication: GASTROOESOPHAGEAL REFLUX DISEASE
     Route: 065
  6. ZANTAC [Concomitant]
  7. TAGAMET [Concomitant]
  8. TUMS [Concomitant]
  9. MILK OF MAGNESIA [Concomitant]
  10. GAVISCON [Concomitant]
  11. PEPTO-BISMOL [Concomitant]
  12. ROLAIDS [Concomitant]
  13. CELEXA [Concomitant]
     Indication: DEPRESSION
  14. TRESNA [Concomitant]
     Indication: SLEEP DISORDER
  15. HYDROXYZINE [Concomitant]
     Indication: ANXIETY
  16. PANTAPRAZOL [Concomitant]
  17. PEPCID [Concomitant]
  18. TRAZADONE [Concomitant]
     Indication: SLEEP DISORDER
  19. OXYCODONE/APAP [Concomitant]
     Dosage: 5MG/325MG TAB
     Dates: start: 20110615
  20. ZOLPIDEM [Concomitant]
     Indication: INSOMNIA
     Dosage: 5 MG TAKE ONE TABLET BY MOUTH AT BEDTIME AS NEEDED
     Dates: start: 201209

REACTIONS (23)
  - Suicidal ideation [Unknown]
  - Impaired healing [Unknown]
  - Myocardial infarction [Unknown]
  - Back injury [Unknown]
  - Mental disorder [Unknown]
  - General physical condition abnormal [Unknown]
  - Intervertebral disc protrusion [Unknown]
  - Osteoporosis [Unknown]
  - Multiple fractures [Unknown]
  - Hand fracture [Unknown]
  - Ankle fracture [Unknown]
  - Bone density decreased [Unknown]
  - Spinal fracture [Unknown]
  - Depression [Unknown]
  - Arthritis [Unknown]
  - Calcium deficiency [Unknown]
  - Lung disorder [Unknown]
  - Vitamin D deficiency [Unknown]
  - Androgen deficiency [Unknown]
  - Rheumatoid arthritis [Unknown]
  - Asthma [Unknown]
  - Intervertebral disc degeneration [Unknown]
  - Lumbar spinal stenosis [Unknown]
